FAERS Safety Report 23801827 (Version 1)
Quarter: 2024Q2

REPORT INFORMATION
  Report Type: Spontaneous
  Country: None (occurrence: US)
  Receive Date: 20240501
  Receipt Date: 20240501
  Transmission Date: 20240715
  Serious: Yes (Death)
  Sender: FDA-Public Use
  Company Number: US-TOLMAR, INC.-24US048706

PATIENT
  Sex: Male
  Weight: 103.22 kg

DRUGS (1)
  1. ELIGARD [Suspect]
     Active Substance: LEUPROLIDE ACETATE
     Indication: Prostate cancer
     Dosage: 45 MILLIGRAM, Q 1 MONTH
     Route: 058
     Dates: start: 20240304

REACTIONS (2)
  - Death [Fatal]
  - Off label use [Unknown]
